FAERS Safety Report 18650694 (Version 5)
Quarter: 2022Q1

REPORT INFORMATION
  Report Type: Report from Study
  Country: FR (occurrence: FR)
  Receive Date: 20201222
  Receipt Date: 20220127
  Transmission Date: 20220423
  Serious: Yes (Life-Threatening, Hospitalization, Other)
  Sender: FDA-Public Use
  Company Number: FR-BRISTOL-MYERS SQUIBB COMPANY-BMS-2020-096583

PATIENT
  Age: 55 Year
  Sex: Male
  Weight: 93 kg

DRUGS (5)
  1. NIVOLUMAB [Suspect]
     Active Substance: NIVOLUMAB
     Indication: Oropharyngeal squamous cell carcinoma
     Dosage: 240 MILLIGRAM, EVERY CYCLE
     Route: 042
     Dates: start: 20200924, end: 20201008
  2. CISPLATIN [Suspect]
     Active Substance: CISPLATIN
     Indication: Oropharyngeal squamous cell carcinoma
     Dosage: 200 MILLIGRAM, EVERY CYCLE
     Route: 042
     Dates: start: 20201022
  3. METFORMIN HYDROCHLORIDE [Concomitant]
     Active Substance: METFORMIN HYDROCHLORIDE
     Indication: Diabetes mellitus
     Dosage: 1000 (UNITS NOT SPECIFIED) X 3/J
     Route: 048
     Dates: end: 20201022
  4. METFORMIN HYDROCHLORIDE [Concomitant]
     Active Substance: METFORMIN HYDROCHLORIDE
     Dosage: 1000 MG, TID
     Route: 048
     Dates: start: 20201116
  5. DOLIPRANE [Concomitant]
     Active Substance: ACETAMINOPHEN
     Indication: Pain
     Dosage: UNK
     Route: 048

REACTIONS (1)
  - Diabetic ketoacidosis [Recovered/Resolved]

NARRATIVE: CASE EVENT DATE: 20201112
